FAERS Safety Report 10451593 (Version 2)
Quarter: 2014Q4

REPORT INFORMATION
  Report Type: Spontaneous
  Country: US (occurrence: US)
  Receive Date: 20140914
  Receipt Date: 20141027
  Transmission Date: 20150528
  Serious: Yes (Hospitalization, Other)
  Sender: FDA-Public Use
  Company Number: US-ELI_LILLY_AND_COMPANY-US201408008271

PATIENT
  Age: 54 Year
  Sex: Male
  Weight: 86.62 kg

DRUGS (2)
  1. HUMALOG [Suspect]
     Active Substance: INSULIN LISPRO
     Indication: TYPE 1 DIABETES MELLITUS
     Dosage: 43 U, QD
     Route: 058
     Dates: start: 2004
  2. HUMALOG [Suspect]
     Active Substance: INSULIN LISPRO
     Dosage: UNK UNK, PRN
     Route: 058
     Dates: start: 2004

REACTIONS (8)
  - Fall [Unknown]
  - Blood glucose increased [Recovered/Resolved]
  - Neuropathy peripheral [Unknown]
  - Blood glucose decreased [Unknown]
  - Vertigo [Unknown]
  - Blood glucose increased [Unknown]
  - Arthropathy [Unknown]
  - Ear disorder [Unknown]

NARRATIVE: CASE EVENT DATE: 2005
